FAERS Safety Report 16724635 (Version 1)
Quarter: 2019Q3

REPORT INFORMATION
  Report Type: Spontaneous
  Country: US (occurrence: US)
  Receive Date: 20190821
  Receipt Date: 20190821
  Transmission Date: 20191005
  Serious: No
  Sender: FDA-Public Use
  Company Number: US-PFIZER INC-2019354808

PATIENT
  Age: 85 Year

DRUGS (2)
  1. LIPITOR [Suspect]
     Active Substance: ATORVASTATIN CALCIUM
     Dosage: UNK
  2. PROTONIX [Suspect]
     Active Substance: PANTOPRAZOLE SODIUM
     Dosage: UNK

REACTIONS (8)
  - Hypertension [Unknown]
  - Dysphonia [Unknown]
  - Pain [Unknown]
  - Fatigue [Unknown]
  - Spinal stenosis [Not Recovered/Not Resolved]
  - Skin burning sensation [Unknown]
  - Condition aggravated [Unknown]
  - Irritability [Unknown]
